FAERS Safety Report 19922595 (Version 1)
Quarter: 2021Q4

REPORT INFORMATION
  Report Type: Report from Study
  Country: TW (occurrence: TW)
  Receive Date: 20211005
  Receipt Date: 20211005
  Transmission Date: 20220303
  Serious: Yes (Other)
  Sender: FDA-Public Use
  Company Number: TW-GLAXOSMITHKLINE-TWCH2021GSK069360

PATIENT

DRUGS (1)
  1. IBUPROFEN [Suspect]
     Active Substance: IBUPROFEN
     Indication: Analgesic intervention supportive therapy
     Dosage: UNK

REACTIONS (7)
  - Stevens-Johnson syndrome [Unknown]
  - Toxic epidermal necrolysis [Unknown]
  - Eye disorder [Unknown]
  - Conjunctival hyperaemia [Unknown]
  - Corneal epithelium defect [Unknown]
  - Conjunctivitis [Unknown]
  - Eyelid injury [Unknown]
